FAERS Safety Report 8116789-4 (Version None)
Quarter: 2012Q1

REPORT INFORMATION
  Report Type: 
  Country: None (occurrence: None)
  Receive Date: 20120206
  Receipt Date: 20120130
  Transmission Date: 20120608
  Serious: Yes (Hospitalization, Other)
  Sender: FDA-Public Use
  Company Number: PHEH2007US15651

PATIENT
  Sex: Female

DRUGS (48)
  1. PLAQUENIL [Concomitant]
  2. FOLIC ACID [Concomitant]
  3. CENTRUM [Concomitant]
  4. PREDNISONE [Concomitant]
  5. CELEBREX [Concomitant]
  6. PAXIL [Concomitant]
  7. ONDANSETRON HCL [Concomitant]
     Dosage: 4 MG, PRN
     Route: 048
  8. DIGOXIN [Concomitant]
  9. ZOMETA [Suspect]
     Indication: BONE DISORDER
     Dosage: 4 MG, QW4
     Route: 042
     Dates: start: 20021016, end: 20051001
  10. MEGACE [Concomitant]
  11. PERIDEX [Concomitant]
  12. NEULASTA [Concomitant]
  13. TUBERCULIN NOS [Concomitant]
  14. ROCEPHIN [Concomitant]
     Dosage: 1 G, UNK
  15. AMPICILLIN [Concomitant]
  16. ALOXI [Concomitant]
  17. DICODIN [Concomitant]
  18. ABRAXANE [Concomitant]
  19. XELODA [Concomitant]
  20. HALOTESTIN [Concomitant]
  21. NEUPOGEN [Concomitant]
  22. VITAMIN B6 [Concomitant]
  23. METOPROLOL [Concomitant]
  24. DOXIL [Concomitant]
  25. METROGEL [Concomitant]
  26. DILAUDID [Concomitant]
  27. ARANESP [Concomitant]
  28. NAVELBINE [Concomitant]
  29. REMICADE [Concomitant]
  30. CHEMOTHERAPEUTICS NOS [Concomitant]
  31. ZANTAC [Concomitant]
  32. FEMARA [Concomitant]
  33. NAVELBINE [Concomitant]
  34. LASIX [Concomitant]
     Dates: start: 20070416
  35. KENALOG [Concomitant]
  36. METHOTREXATE [Concomitant]
  37. TAXOTERE [Concomitant]
  38. VITAMIN D [Concomitant]
  39. MULTI-VITAMINS [Concomitant]
  40. LOPRESSOR [Concomitant]
     Route: 048
  41. AROMASIN [Concomitant]
  42. ASPIRIN [Concomitant]
  43. TAMOXIFEN CITRATE [Concomitant]
  44. FASLODEX [Concomitant]
  45. CALCIUM [Concomitant]
  46. FLAGYL [Concomitant]
  47. ZYVOX [Concomitant]
  48. ATIVAN [Concomitant]

REACTIONS (65)
  - PHYSICAL DISABILITY [None]
  - OSTEOMYELITIS [None]
  - PELVI-URETERIC OBSTRUCTION [None]
  - ANTIBIOTIC RESISTANT STAPHYLOCOCCUS TEST POSITIVE [None]
  - BRONCHIECTASIS [None]
  - LUNG NEOPLASM [None]
  - ASCITES [None]
  - CARDIAC FAILURE CONGESTIVE [None]
  - APPENDICITIS [None]
  - PNEUMONIA [None]
  - INFECTION [None]
  - ANAEMIA [None]
  - TONGUE ULCERATION [None]
  - SPINAL COMPRESSION FRACTURE [None]
  - HYPERKALAEMIA [None]
  - PRESBYACUSIS [None]
  - TOOTH LOSS [None]
  - LYMPHOMA [None]
  - METASTASES TO SPINE [None]
  - RENAL FAILURE [None]
  - PAIN [None]
  - NEPHROLITHIASIS [None]
  - WALKING AID USER [None]
  - DIARRHOEA [None]
  - HYPOGAMMAGLOBULINAEMIA [None]
  - COELIAC DISEASE [None]
  - METASTASES TO BONE [None]
  - HEPATIC NEOPLASM MALIGNANT [None]
  - OSTEONECROSIS OF JAW [None]
  - DERMAL CYST [None]
  - DIABETIC ULCER [None]
  - DIABETIC ENTEROPATHY [None]
  - SEPSIS [None]
  - KYPHOSIS [None]
  - BONE DISORDER [None]
  - DYSURIA [None]
  - VARICOSE VEIN [None]
  - CHRONIC OBSTRUCTIVE PULMONARY DISEASE [None]
  - PULMONARY MASS [None]
  - SPINAL COLUMN STENOSIS [None]
  - EMOTIONAL DISTRESS [None]
  - BACK PAIN [None]
  - APPENDICITIS PERFORATED [None]
  - NODAL OSTEOARTHRITIS [None]
  - NAUSEA [None]
  - URINARY TRACT INFECTION ENTEROCOCCAL [None]
  - SLEEP APNOEA SYNDROME [None]
  - ADENOMATOUS POLYPOSIS COLI [None]
  - PANCYTOPENIA [None]
  - PLEURAL EFFUSION [None]
  - ATRIAL FIBRILLATION [None]
  - DEFORMITY [None]
  - BREAST PROSTHESIS USER [None]
  - HORDEOLUM [None]
  - DECREASED APPETITE [None]
  - THROMBOCYTOPENIA [None]
  - DIZZINESS [None]
  - ANXIETY [None]
  - GAIT DISTURBANCE [None]
  - MYELODYSPLASTIC SYNDROME [None]
  - DEHYDRATION [None]
  - FATIGUE [None]
  - EUSTACHIAN TUBE DYSFUNCTION [None]
  - DEPRESSION [None]
  - CLOSTRIDIUM DIFFICILE COLITIS [None]
